FAERS Safety Report 12112850 (Version 1)
Quarter: 2016Q1

REPORT INFORMATION
  Report Type: Other
  Country: US (occurrence: US)
  Receive Date: 20160225
  Receipt Date: 20160225
  Transmission Date: 20160526
  Serious: No
  Sender: FDA-Public Use
  Company Number: US-ACORDA-ACO_116324_2015

PATIENT
  Sex: Male

DRUGS (1)
  1. AMPYRA [Suspect]
     Active Substance: DALFAMPRIDINE
     Indication: VISUAL IMPAIRMENT
     Dosage: 10 MG, QD
     Route: 065
     Dates: end: 201508

REACTIONS (3)
  - Therapy cessation [Unknown]
  - Therapeutic response unexpected [Not Recovered/Not Resolved]
  - Off label use [Unknown]
